FAERS Safety Report 26217115 (Version 1)
Quarter: 2025Q4

REPORT INFORMATION
  Report Type: Spontaneous
  Country: US (occurrence: US)
  Receive Date: 20251231
  Receipt Date: 20251231
  Transmission Date: 20260117
  Serious: Yes (Death, Hospitalization, Other)
  Sender: BAXTER
  Company Number: US-MLMSERVICE-20251220-PI755671-00271-3

PATIENT
  Age: 71 Year
  Sex: Male

DRUGS (6)
  1. CYCLOPHOSPHAMIDE [Suspect]
     Active Substance: CYCLOPHOSPHAMIDE
     Indication: Diffuse large B-cell lymphoma
     Dosage: UNK
     Route: 065
  2. DOXORUBICIN [Suspect]
     Active Substance: DOXORUBICIN
     Indication: Diffuse large B-cell lymphoma
     Dosage: UNK
     Route: 065
  3. RITUXIMAB [Suspect]
     Active Substance: RITUXIMAB
     Indication: Diffuse large B-cell lymphoma
     Dosage: UNK
     Route: 065
  4. PREDNISONE [Suspect]
     Active Substance: PREDNISONE
     Indication: Diffuse large B-cell lymphoma
     Dosage: UNK
     Route: 065
  5. VINCRISTINE [Suspect]
     Active Substance: VINCRISTINE
     Indication: Diffuse large B-cell lymphoma
     Dosage: UNK
     Route: 065
  6. EPCORITAMAB [Suspect]
     Active Substance: EPCORITAMAB
     Indication: Diffuse large B-cell lymphoma
     Dosage: UNK
     Route: 065

REACTIONS (13)
  - Cytokine release syndrome [Unknown]
  - Hyperlipidaemia [Unknown]
  - Cytomegalovirus test positive [Unknown]
  - Hypothyroidism [Unknown]
  - Respiratory failure [Fatal]
  - Cardiac sarcoidosis [Unknown]
  - Bacteraemia [Unknown]
  - Respiratory distress [Unknown]
  - Hypoxia [Unknown]
  - Fatigue [Unknown]
  - Sepsis [Unknown]
  - Asthenia [Unknown]
  - Diarrhoea [Unknown]
